FAERS Safety Report 22068429 (Version 1)
Quarter: 2023Q1

REPORT INFORMATION
  Report Type: Report from Study
  Country: US (occurrence: US)
  Receive Date: 20230307
  Receipt Date: 20230307
  Transmission Date: 20230417
  Serious: Yes (Other)
  Sender: FDA-Public Use
  Company Number: US-ABBVIE-4328935

PATIENT
  Sex: Male

DRUGS (1)
  1. IMBRUVICA [Suspect]
     Active Substance: IBRUTINIB
     Indication: Chronic lymphocytic leukaemia
     Route: 048
     Dates: start: 202301

REACTIONS (5)
  - Eye operation [Unknown]
  - Paranasal sinus inflammation [Unknown]
  - Ear infection [Unknown]
  - Hypoacusis [Unknown]
  - Ear discomfort [Unknown]

NARRATIVE: CASE EVENT DATE: 20230101
